FAERS Safety Report 5131431-2 (Version None)
Quarter: 2006Q4

REPORT INFORMATION
  Report Type: 
  Country: None (occurrence: None)
  Receive Date: 20061020
  Receipt Date: 20061017
  Transmission Date: 20070319
  Serious: Yes (Hospitalization)
  Sender: FDA-Public Use
  Company Number: FR-GLAXOSMITHKLINE-B0442812A

PATIENT
  Age: 41 Year
  Sex: Male

DRUGS (3)
  1. CLAMOXYL IV [Suspect]
     Indication: ERYSIPELAS
     Dosage: 2G THREE TIMES PER DAY
     Route: 042
     Dates: start: 20060814
  2. CLAMOXYL [Suspect]
     Indication: ERYSIPELAS
     Route: 048
     Dates: end: 20060818
  3. TEGRETOL [Concomitant]
     Route: 048
     Dates: end: 20060925

REACTIONS (5)
  - BLOOD ALKALINE PHOSPHATASE INCREASED [None]
  - CHOLESTASIS [None]
  - GAMMA-GLUTAMYLTRANSFERASE INCREASED [None]
  - HEPATIC STEATOSIS [None]
  - HEPATOMEGALY [None]
